FAERS Safety Report 8806081 (Version 3)
Quarter: 2013Q4

REPORT INFORMATION
  Report Type: Spontaneous
  Country: US (occurrence: US)
  Receive Date: 20120925
  Receipt Date: 20131205
  Transmission Date: 20140711
  Serious: Yes (Life-Threatening, Hospitalization, Other)
  Sender: FDA-Public Use
  Company Number: US-009507513-1209USA008144

PATIENT
  Sex: Female
  Weight: 81.63 kg

DRUGS (1)
  1. NUVARING [Suspect]
     Indication: CONTRACEPTION
     Dosage: UNK
     Route: 067
     Dates: start: 20100325, end: 20110901

REACTIONS (15)
  - Fibrin D dimer increased [Unknown]
  - Pulmonary infarction [Recovered/Resolved]
  - Pulmonary embolism [Recovered/Resolved]
  - Ecchymosis [Unknown]
  - Abortion [Unknown]
  - Local swelling [Unknown]
  - Accident [Unknown]
  - Pain in extremity [Unknown]
  - Erythema [Unknown]
  - Adverse drug reaction [Unknown]
  - Rash pruritic [Unknown]
  - Vaginitis bacterial [Unknown]
  - Temporomandibular joint syndrome [Unknown]
  - Fibrocystic breast disease [Unknown]
  - Plantar fasciitis [Unknown]
